FAERS Safety Report 21052751 (Version 1)
Quarter: 2022Q3

REPORT INFORMATION
  Report Type: Report from Study
  Country: CO (occurrence: CO)
  Receive Date: 20220707
  Receipt Date: 20220707
  Transmission Date: 20221027
  Serious: Yes (Disabling, Other)
  Sender: FDA-Public Use
  Company Number: CO-ABBVIE-22K-036-4457522-00

PATIENT
  Sex: Female
  Weight: 67 kg

DRUGS (2)
  1. HUMIRA [Suspect]
     Active Substance: ADALIMUMAB
     Indication: Rheumatoid arthritis
     Route: 058
     Dates: start: 20141030
  2. HUMIRA [Suspect]
     Active Substance: ADALIMUMAB
     Indication: Rheumatoid arthritis
     Dosage: CITRATE FREEE
     Route: 058

REACTIONS (8)
  - Respiratory failure [Recovering/Resolving]
  - Blindness transient [Recovering/Resolving]
  - Joint swelling [Unknown]
  - Dizziness [Recovering/Resolving]
  - Migraine [Recovering/Resolving]
  - Rheumatoid arthritis [Recovering/Resolving]
  - Muscular weakness [Recovering/Resolving]
  - Bone pain [Recovering/Resolving]

NARRATIVE: CASE EVENT DATE: 20200101
